FAERS Safety Report 9657359 (Version 1)
Quarter: 2013Q4

REPORT INFORMATION
  Report Type: Report from Study
  Country: IN (occurrence: IN)
  Receive Date: 20131030
  Receipt Date: 20131030
  Transmission Date: 20140711
  Serious: Yes (Death)
  Sender: FDA-Public Use
  Company Number: IN-GLAXOSMITHKLINE-B0936589A

PATIENT
  Age: 35 Year
  Sex: Female

DRUGS (1)
  1. TYKERB [Suspect]
     Indication: BREAST CANCER METASTATIC
     Dosage: 4TAB PER DAY
     Route: 065

REACTIONS (4)
  - Myocardial infarction [Fatal]
  - Hepatic infection [Unknown]
  - Abdominal pain upper [Unknown]
  - Jaundice [Unknown]
